FAERS Safety Report 9254291 (Version 1)
Quarter: 2013Q1

REPORT INFORMATION
  Report Type: Spontaneous
  Country: US (occurrence: None)
  Receive Date: 20121211
  Receipt Date: 20121211
  Transmission Date: 20140127
  Serious: Yes (Other)
  Sender: FDA-Public Use
  Company Number: 1209USA003442

PATIENT
  Age: 46 Year
  Sex: Male

DRUGS (6)
  1. ISENTRESS [Suspect]
     Route: 048
  2. DARUNAVIR [Suspect]
     Route: 048
  3. TRUVADA [Suspect]
  4. ETRAVIRINE [Suspect]
  5. DAPSONE (DAPSONE) [Concomitant]
  6. DIAZEPAM (DIAZEPAM) [Concomitant]

REACTIONS (1)
  - Rash [None]
